FAERS Safety Report 19279939 (Version 1)
Quarter: 2021Q2

REPORT INFORMATION
  Report Type: Spontaneous
  Country: US (occurrence: US)
  Receive Date: 20210520
  Receipt Date: 20210520
  Transmission Date: 20210717
  Serious: No
  Sender: FDA-Public Use
  Company Number: US-SA-2021SA165429

PATIENT
  Sex: Female

DRUGS (2)
  1. ALLEGRA ALLERGY [Suspect]
     Active Substance: FEXOFENADINE HYDROCHLORIDE
     Dosage: ALLEGRA ALLERGY 24 HR GELCAPS 180 MG FILM?COATED TABLET
     Route: 065
  2. LORATADINE. [Suspect]
     Active Substance: LORATADINE
     Route: 065

REACTIONS (1)
  - Throat tightness [Unknown]
